FAERS Safety Report 13154251 (Version 1)
Quarter: 2017Q1

REPORT INFORMATION
  Report Type: Spontaneous
  Country: US (occurrence: US)
  Receive Date: 20170126
  Receipt Date: 20170126
  Transmission Date: 20170428
  Serious: Yes (Life-Threatening)
  Sender: FDA-Public Use
  Company Number: None

PATIENT
  Age: 73 Year
  Sex: Male
  Weight: 95.71 kg

DRUGS (10)
  1. IBUPROFEN. [Suspect]
     Active Substance: IBUPROFEN
     Indication: ARTHRALGIA
     Route: 048
     Dates: start: 19830201, end: 20160330
  2. CQ10 [Concomitant]
     Active Substance: UBIDECARENONE
  3. ULORIC [Concomitant]
     Active Substance: FEBUXOSTAT
  4. LOSARTAN. [Concomitant]
     Active Substance: LOSARTAN
  5. OMEPRAZOLE. [Concomitant]
     Active Substance: OMEPRAZOLE
  6. MULTIVITAMIN [Concomitant]
     Active Substance: VITAMINS
  7. IBUPROFEN. [Suspect]
     Active Substance: IBUPROFEN
     Indication: BACK PAIN
     Route: 048
     Dates: start: 19830201, end: 20160330
  8. CLONIDINE. [Concomitant]
     Active Substance: CLONIDINE
  9. ATORVASTATIN [Concomitant]
     Active Substance: ATORVASTATIN
  10. ADVIL [Suspect]
     Active Substance: IBUPROFEN

REACTIONS (1)
  - Renal disorder [None]

NARRATIVE: CASE EVENT DATE: 20160303
